FAERS Safety Report 11165859 (Version 1)
Quarter: 2015Q2

REPORT INFORMATION
  Report Type: Spontaneous
  Country: US (occurrence: US)
  Receive Date: 20150604
  Receipt Date: 20150604
  Transmission Date: 20150821
  Serious: Yes (Hospitalization, Other)
  Sender: FDA-Public Use
  Company Number: US-GLAXOSMITHKLINE-US2015GSK076939

PATIENT
  Age: 67 Year
  Sex: Female

DRUGS (2)
  1. VOTRIENT [Suspect]
     Active Substance: PAZOPANIB HYDROCHLORIDE
     Indication: SOFT TISSUE SARCOMA
     Dosage: 400 MG, QD
     Route: 048
     Dates: start: 20150428, end: 20150513
  2. VOTRIENT [Suspect]
     Active Substance: PAZOPANIB HYDROCHLORIDE
     Indication: CONNECTIVE TISSUE NEOPLASM

REACTIONS (6)
  - Abasia [Unknown]
  - Palmar-plantar erythrodysaesthesia syndrome [Unknown]
  - Hernia [Unknown]
  - Abdominal pain upper [Unknown]
  - Blister [Unknown]
  - Swelling [Unknown]

NARRATIVE: CASE EVENT DATE: 20150513
